FAERS Safety Report 25711688 (Version 2)
Quarter: 2025Q3

REPORT INFORMATION
  Report Type: Spontaneous
  Country: EU (occurrence: EU)
  Receive Date: 20250821
  Receipt Date: 20250902
  Transmission Date: 20251021
  Serious: Yes (Other)
  Sender: NOVARTIS
  Company Number: EU-002147023-NVSC2023FR158320

PATIENT
  Weight: 50 kg

DRUGS (7)
  1. MYFORTIC [Suspect]
     Active Substance: MYCOPHENOLATE SODIUM
     Indication: Renal transplant
     Dosage: 360 MG, Q12H (720 MG, QD)
     Route: 065
     Dates: start: 20200122
  2. MYFORTIC [Suspect]
     Active Substance: MYCOPHENOLATE SODIUM
     Route: 065
  3. ENTECAVIR [Suspect]
     Active Substance: ENTECAVIR
     Indication: Chronic hepatitis B
     Dosage: 0.5 MG, QD
     Route: 065
     Dates: start: 20200122
  4. SOLIRIS [Suspect]
     Active Substance: ECULIZUMAB
     Indication: Atypical haemolytic uraemic syndrome
     Route: 065
     Dates: start: 20201023
  5. DIENOGEST [Suspect]
     Active Substance: DIENOGEST
     Indication: Endometriosis
     Dosage: 2 MG, QD
     Route: 065
     Dates: start: 20221001
  6. PROGRAF [Suspect]
     Active Substance: TACROLIMUS
     Indication: Renal transplant
     Dosage: 4.5 MG, Q12H (9 MG, QD)
     Route: 065
     Dates: start: 20200122
  7. PROGRAF [Suspect]
     Active Substance: TACROLIMUS
     Route: 065

REACTIONS (1)
  - Neutropenia [Not Recovered/Not Resolved]

NARRATIVE: CASE EVENT DATE: 20230419
